FAERS Safety Report 18353876 (Version 2)
Quarter: 2021Q1

REPORT INFORMATION
  Report Type: Spontaneous
  Country: QA (occurrence: QA)
  Receive Date: 20201006
  Receipt Date: 20210208
  Transmission Date: 20210419
  Serious: Yes (Other)
  Sender: FDA-Public Use
  Company Number: QA-B.I. PHARMACEUTICALS,INC./RIDGEFIELD-2020-BI-050934

PATIENT
  Age: 43 Year
  Sex: Female

DRUGS (1)
  1. PRADAXA [Suspect]
     Active Substance: DABIGATRAN ETEXILATE MESYLATE
     Indication: ANTIPHOSPHOLIPID SYNDROME
     Route: 065

REACTIONS (3)
  - Amnesia [Not Recovered/Not Resolved]
  - Cerebral infarction [Unknown]
  - Thalamic infarction [Unknown]
